FAERS Safety Report 19508178 (Version 1)
Quarter: 2021Q3

REPORT INFORMATION
  Report Type: Spontaneous
  Country: CN (occurrence: CN)
  Receive Date: 20210708
  Receipt Date: 20210708
  Transmission Date: 20211014
  Serious: Yes (Hospitalization, Other)
  Sender: FDA-Public Use
  Company Number: CN-PFIZER INC-2021787950

PATIENT
  Age: 35 Year
  Sex: Female
  Weight: 48 kg

DRUGS (2)
  1. SOLU?MEDROL [Suspect]
     Active Substance: METHYLPREDNISOLONE SODIUM SUCCINATE
     Indication: IMMUNOMODULATORY THERAPY
     Dosage: 40 MG, ONCE A DAY
     Route: 041
     Dates: start: 20210501, end: 20210502
  2. SOLU?MEDROL [Suspect]
     Active Substance: METHYLPREDNISOLONE SODIUM SUCCINATE
     Indication: ANTIINFLAMMATORY THERAPY
     Dosage: 40 MG, ONCE A DAY
     Route: 041
     Dates: start: 20210428, end: 20210430

REACTIONS (2)
  - Gastrointestinal disorder [Recovering/Resolving]
  - Abdominal pain [Recovering/Resolving]

NARRATIVE: CASE EVENT DATE: 20210430
